FAERS Safety Report 13617813 (Version 8)
Quarter: 2022Q1

REPORT INFORMATION
  Report Type: Report from Study
  Country: JP (occurrence: JP)
  Receive Date: 20170606
  Receipt Date: 20220331
  Transmission Date: 20220424
  Serious: Yes (Hospitalization, Other)
  Sender: FDA-Public Use
  Company Number: JP-BRISTOL-MYERS SQUIBB COMPANY-BMS-2016-027390

PATIENT
  Age: 45 Year
  Sex: Female
  Weight: 49 kg

DRUGS (3)
  1. OPDIVO [Suspect]
     Active Substance: NIVOLUMAB
     Indication: Malignant melanoma
     Dosage: 2 MILLIGRAM/KILOGRAM
     Route: 041
     Dates: start: 20151019, end: 20161017
  2. OPDIVO [Suspect]
     Active Substance: NIVOLUMAB
     Dosage: UNK, 50TH, 51ST COURSES
     Route: 041
     Dates: start: 201811
  3. OPDIVO [Suspect]
     Active Substance: NIVOLUMAB
     Dosage: 240 MILLIGRAM
     Route: 042
     Dates: start: 201810

REACTIONS (5)
  - Pneumonia bacterial [Unknown]
  - Fulminant type 1 diabetes mellitus [Recovering/Resolving]
  - Leukoderma [Not Recovered/Not Resolved]
  - Gamma-glutamyltransferase increased [Not Recovered/Not Resolved]
  - Pruritus [Unknown]

NARRATIVE: CASE EVENT DATE: 20151222
